FAERS Safety Report 20321936 (Version 3)
Quarter: 2022Q3

REPORT INFORMATION
  Report Type: Report from Study
  Country: FR (occurrence: FR)
  Receive Date: 20220111
  Receipt Date: 20220628
  Transmission Date: 20221027
  Serious: Yes (Other)
  Sender: FDA-Public Use
  Company Number: FR-NOVARTISPH-NVSC2021FR301844

PATIENT
  Age: 82 Year
  Sex: Male

DRUGS (6)
  1. CAPMATINIB [Suspect]
     Active Substance: CAPMATINIB
     Indication: Non-small cell lung cancer
     Dosage: 800 MG, QD
     Route: 048
     Dates: start: 20200318
  2. CAPMATINIB [Suspect]
     Active Substance: CAPMATINIB
     Dosage: 400 MG, BID
     Route: 048
     Dates: start: 20200428
  3. CAPMATINIB [Suspect]
     Active Substance: CAPMATINIB
     Dosage: 400 MG, QD
     Route: 048
     Dates: start: 20200630, end: 20201002
  4. CAPMATINIB [Suspect]
     Active Substance: CAPMATINIB
     Dosage: 200 MG, QD
     Route: 048
     Dates: start: 20201002, end: 20201221
  5. CAPMATINIB [Suspect]
     Active Substance: CAPMATINIB
     Dosage: 100 MG, QD
     Route: 048
     Dates: start: 20201222
  6. KEPPRA [Concomitant]
     Active Substance: LEVETIRACETAM
     Indication: Product used for unknown indication
     Dosage: UNK (2 DOSES OF 250)
     Route: 048

REACTIONS (6)
  - Hepatic cytolysis [Recovered/Resolved]
  - Metastases to bone [Unknown]
  - Non-small cell lung cancer stage III [Unknown]
  - Malignant neoplasm progression [Unknown]
  - Creatinine renal clearance decreased [Not Recovered/Not Resolved]
  - Oedema peripheral [Not Recovered/Not Resolved]

NARRATIVE: CASE EVENT DATE: 20200428
